FAERS Safety Report 10067278 (Version 2)
Quarter: 2015Q2

REPORT INFORMATION
  Report Type: Spontaneous
  Country: US (occurrence: US)
  Receive Date: 20140409
  Receipt Date: 20150520
  Transmission Date: 20150821
  Serious: Yes (Death, Life-Threatening, Hospitalization, Other)
  Sender: FDA-Public Use
  Company Number: US-MERCK-1404USA004114

PATIENT
  Sex: Female
  Weight: 82.99 kg

DRUGS (1)
  1. JANUVIA [Suspect]
     Active Substance: SITAGLIPTIN PHOSPHATE
     Indication: TYPE 2 DIABETES MELLITUS
     Dosage: 100 MG, QD
     Route: 048
     Dates: start: 20090625, end: 20100520

REACTIONS (22)
  - Pleural effusion [Unknown]
  - Pancreatic carcinoma metastatic [Fatal]
  - Thyroidectomy [Unknown]
  - Seroma [Unknown]
  - Hypertension [Unknown]
  - Leukocytosis [Recovering/Resolving]
  - Cervical vertebral fracture [Unknown]
  - Hyperlipidaemia [Unknown]
  - Diverticulum [Unknown]
  - Arteriosclerosis [Unknown]
  - Hypothyroidism [Unknown]
  - Anaemia [Unknown]
  - Skin lesion excision [Unknown]
  - Acute kidney injury [Unknown]
  - Electrocardiogram ST segment abnormal [Unknown]
  - Pulmonary mass [Unknown]
  - Spinal osteoarthritis [Unknown]
  - Splenic granuloma [Unknown]
  - Knee arthroplasty [Unknown]
  - Adrenal mass [Unknown]
  - Hepatic lesion [Unknown]
  - Atelectasis [Unknown]

NARRATIVE: CASE EVENT DATE: 20090922
